FAERS Safety Report 7752557-0 (Version None)
Quarter: 2011Q3

REPORT INFORMATION
  Report Type: 
  Country: None (occurrence: None)
  Receive Date: 20110915
  Receipt Date: 20100608
  Transmission Date: 20111222
  Serious: No
  Sender: FDA-Public Use
  Company Number: US-BAYER-201025738NA

PATIENT
  Age: 41 Year
  Sex: Female

DRUGS (2)
  1. MIRENA [Suspect]
     Dosage: UNK
     Dates: end: 20100226
  2. MIRENA [Suspect]
     Dosage: UNK
     Dates: start: 20090801, end: 20100215

REACTIONS (4)
  - PROCEDURAL PAIN [None]
  - MEDICAL DEVICE DISCOMFORT [None]
  - PAIN [None]
  - DEVICE EXPULSION [None]
